FAERS Safety Report 4298764-3 (Version None)
Quarter: 2004Q1

REPORT INFORMATION
  Report Type: 
  Country: None (occurrence: None)
  Receive Date: 20040126
  Receipt Date: 20031110
  Transmission Date: 20041129
  Serious: No
  Sender: FDA-Public Use
  Company Number: US_031198940

PATIENT
  Sex: Female

DRUGS (3)
  1. STRATTERA [Suspect]
     Indication: FATIGUE
     Dosage: 60 MG/DAY
     Dates: start: 20031105
  2. STRATTERA [Suspect]
     Indication: FIBROMYALGIA
     Dosage: 60 MG/DAY
     Dates: start: 20031105
  3. OGEN [Concomitant]

REACTIONS (4)
  - DISORIENTATION [None]
  - FATIGUE [None]
  - HOT FLUSH [None]
  - INSOMNIA [None]
